FAERS Safety Report 25320241 (Version 1)
Quarter: 2025Q2

REPORT INFORMATION
  Report Type: Spontaneous
  Country: US (occurrence: US)
  Receive Date: 20250515
  Receipt Date: 20250515
  Transmission Date: 20250717
  Serious: No
  Sender: GLAXOSMITHKLINE
  Company Number: US-GSK-US2025046055

PATIENT
  Age: 64 Year
  Sex: Female

DRUGS (3)
  1. NUCALA [Suspect]
     Active Substance: MEPOLIZUMAB
     Indication: Asthma
     Dosage: 100 MG, Q4W
     Route: 058
     Dates: start: 202211
  2. NUCALA [Suspect]
     Active Substance: MEPOLIZUMAB
     Indication: Pneumonia
  3. URSODIOL [Concomitant]
     Active Substance: URSODIOL
     Indication: Autoimmune disorder
     Dates: start: 202412

REACTIONS (5)
  - Dyspnoea [Unknown]
  - Nasopharyngitis [Unknown]
  - Thyroiditis [Unknown]
  - Primary biliary cholangitis [Unknown]
  - Product use in unapproved indication [Unknown]

NARRATIVE: CASE EVENT DATE: 20221101
